FAERS Safety Report 8028015-5 (Version None)
Quarter: 2012Q1

REPORT INFORMATION
  Report Type: 
  Country: None (occurrence: None)
  Receive Date: 20120106
  Receipt Date: 20120104
  Transmission Date: 20120608
  Serious: Yes (Disabling)
  Sender: FDA-Public Use
  Company Number: CR-ROCHE-1016496

PATIENT
  Sex: Female

DRUGS (2)
  1. HERCEPTIN [Suspect]
     Indication: BREAST CANCER
     Route: 042
     Dates: start: 20100908, end: 20110901
  2. LYRICA [Concomitant]
     Indication: PERIARTHRITIS
     Route: 048
     Dates: end: 20111101

REACTIONS (1)
  - PERIARTHRITIS [None]
